FAERS Safety Report 7099283-1 (Version None)
Quarter: 2010Q4

REPORT INFORMATION
  Report Type: 
  Country: None (occurrence: None)
  Receive Date: 20101104
  Receipt Date: 20101021
  Transmission Date: 20110411
  Serious: Yes (Other)
  Sender: FDA-Public Use
  Company Number: 020832

PATIENT
  Sex: Male
  Weight: 70.3 kg

DRUGS (4)
  1. CIMZIA [Suspect]
     Indication: CROHN'S DISEASE
     Dosage: (400 MG 1X/2 WEEKS SUBCUTANEOUS)
     Route: 058
     Dates: start: 20100922, end: 20101006
  2. IMURAN [Concomitant]
  3. CALCIUM [Concomitant]
  4. VITAMIN TAB [Concomitant]

REACTIONS (6)
  - CHEST PAIN [None]
  - CONDITION AGGRAVATED [None]
  - DEMYELINATION [None]
  - HYPOAESTHESIA [None]
  - PAIN [None]
  - VISUAL IMPAIRMENT [None]
